FAERS Safety Report 20327012 (Version 1)
Quarter: 2022Q1

REPORT INFORMATION
  Report Type: Spontaneous
  Country: US (occurrence: None)
  Receive Date: 20220111
  Receipt Date: 20220111
  Transmission Date: 20220423
  Serious: Yes (Hospitalization)
  Sender: FDA-Public Use
  Company Number: None

PATIENT
  Age: 84 Year
  Sex: Male

DRUGS (1)
  1. GAMMAGARD [Suspect]
     Active Substance: HUMAN IMMUNOGLOBULIN G
     Indication: Hypogammaglobulinaemia
     Dosage: 30 GM EVERY 4 WEEKS IV?
     Route: 042
     Dates: start: 201611

REACTIONS (3)
  - Fall [None]
  - Fracture [None]
  - Cerebral haemorrhage [None]

NARRATIVE: CASE EVENT DATE: 20211221
